FAERS Safety Report 9802127 (Version 1)
Quarter: 2014Q1

REPORT INFORMATION
  Report Type: Spontaneous
  Country: GB (occurrence: GB)
  Receive Date: 20140107
  Receipt Date: 20140107
  Transmission Date: 20141002
  Serious: Yes (Other)
  Sender: FDA-Public Use
  Company Number: GB-PFIZER INC-2014003088

PATIENT
  Age: 38 Year
  Sex: Male
  Weight: 105 kg

DRUGS (1)
  1. IBUPROFEN [Suspect]
     Indication: PILONIDAL CYST
     Dosage: 400MG X 2/3 TIMES DAILY DIMINISHING
     Route: 048
     Dates: start: 20111101, end: 20120601

REACTIONS (2)
  - Vision blurred [Unknown]
  - Visual impairment [Unknown]
